FAERS Safety Report 6460642-9 (Version None)
Quarter: 2009Q4

REPORT INFORMATION
  Report Type: 
  Country: None (occurrence: None)
  Receive Date: 20091130
  Receipt Date: 20091124
  Transmission Date: 20100525
  Serious: Yes (Death, Hospitalization)
  Sender: FDA-Public Use
  Company Number: FR-JNJFOC-20091105949

PATIENT
  Age: 50 Year
  Sex: Female

DRUGS (2)
  1. RISPERDAL CONSTA [Suspect]
     Indication: SCHIZOAFFECTIVE DISORDER
     Route: 030
  2. DEPAMIDE [Suspect]
     Indication: DEPRESSION
     Route: 065

REACTIONS (3)
  - COMPLETED SUICIDE [None]
  - PSYCHOTIC DISORDER [None]
  - THERAPEUTIC RESPONSE DECREASED [None]
